FAERS Safety Report 11812930 (Version 1)
Quarter: 2015Q4

REPORT INFORMATION
  Report Type: Spontaneous
  Country: CH (occurrence: CH)
  Receive Date: 20151209
  Receipt Date: 20151209
  Transmission Date: 20160305
  Serious: Yes (Other)
  Sender: FDA-Public Use
  Company Number: CH-ROCHE-1674778

PATIENT
  Age: 59 Year
  Sex: Female
  Weight: 80 kg

DRUGS (2)
  1. SOVALDI [Suspect]
     Active Substance: SOFOSBUVIR
     Indication: HEPATITIS C
     Route: 048
     Dates: start: 20150204, end: 20150723
  2. RIBAVIRIN. [Suspect]
     Active Substance: RIBAVIRIN
     Indication: HEPATITIS C
     Route: 048
     Dates: start: 20150204, end: 20150723

REACTIONS (2)
  - Drug ineffective [Unknown]
  - Hepatitis C [Recovered/Resolved]

NARRATIVE: CASE EVENT DATE: 20150204
